FAERS Safety Report 12826236 (Version 1)
Quarter: 2016Q4

REPORT INFORMATION
  Report Type: Spontaneous
  Country: US (occurrence: US)
  Receive Date: 20161006
  Receipt Date: 20161006
  Transmission Date: 20170207
  Serious: No
  Sender: FDA-Public Use
  Company Number: US-JAZZ-2016-US-012598

PATIENT
  Age: 45 Year
  Sex: Female

DRUGS (18)
  1. ASPIRIN. [Concomitant]
     Active Substance: ASPIRIN
  2. XYREM [Suspect]
     Active Substance: SODIUM OXYBATE
     Indication: NARCOLEPSY
     Dosage: 2.25 G, BID
     Route: 048
     Dates: start: 201602, end: 201603
  3. CETIRIZINE HCL [Concomitant]
     Active Substance: CETIRIZINE HYDROCHLORIDE
  4. VOLTAREN [Concomitant]
     Active Substance: DICLOFENAC SODIUM
  5. HYDROCORTISONE. [Concomitant]
     Active Substance: HYDROCORTISONE
  6. NEODERM [Concomitant]
     Active Substance: BETAMETHASONE DIPROPIONATE\CLOTRIMAZOLE\GENTAMICIN SULFATE
  7. PHAZYME [Concomitant]
     Active Substance: DIMETHICONE 410
  8. FLUNISOLIDE. [Concomitant]
     Active Substance: FLUNISOLIDE
  9. METHOCARBAMOL. [Suspect]
     Active Substance: METHOCARBAMOL
     Indication: PRODUCT USED FOR UNKNOWN INDICATION
     Dosage: 750 MG
  10. NEXIUM [Concomitant]
     Active Substance: ESOMEPRAZOLE MAGNESIUM
  11. DEXILANT [Concomitant]
     Active Substance: DEXLANSOPRAZOLE
  12. FLONASE [Concomitant]
     Active Substance: FLUTICASONE PROPIONATE
  13. HYDROCERIN [Concomitant]
  14. MODAFINIL. [Concomitant]
     Active Substance: MODAFINIL
  15. NAPROXEN. [Concomitant]
     Active Substance: NAPROXEN
  16. XYREM [Suspect]
     Active Substance: SODIUM OXYBATE
     Dosage: 3 G, BID
     Route: 048
     Dates: start: 201603
  17. VITAMIN D3 [Concomitant]
     Active Substance: CHOLECALCIFEROL
  18. AMLODIPINE BESYLATE. [Concomitant]
     Active Substance: AMLODIPINE BESYLATE

REACTIONS (3)
  - Hypertension [Unknown]
  - Muscle spasms [Unknown]
  - Drug ineffective [Unknown]

NARRATIVE: CASE EVENT DATE: 2016
